FAERS Safety Report 9246659 (Version 3)
Quarter: 2013Q3

REPORT INFORMATION
  Report Type: Spontaneous
  Country: JP (occurrence: JP)
  Receive Date: 20130422
  Receipt Date: 20130724
  Transmission Date: 20140515
  Serious: Yes (Hospitalization)
  Sender: FDA-Public Use
  Company Number: JP-UCBSA-083470

PATIENT
  Age: 18 Year
  Sex: Male

DRUGS (13)
  1. E KEPPRA [Suspect]
     Indication: EPILEPSY
     Route: 048
     Dates: start: 20110330, end: 20110412
  2. E KEPPRA [Suspect]
     Indication: EPILEPSY
     Dosage: DAILY DOSE: 1000 MG
     Route: 048
     Dates: start: 20110413, end: 20110510
  3. E KEPPRA [Suspect]
     Indication: EPILEPSY
     Dosage: 500MGX1, 1500MGX1
     Route: 048
     Dates: start: 20110511, end: 20110524
  4. E KEPPRA [Suspect]
     Indication: EPILEPSY
     Route: 048
     Dates: start: 20110525, end: 20110705
  5. E KEPPRA [Suspect]
     Indication: EPILEPSY
     Dosage: 1000MGX1, 1500MGX1
     Route: 048
     Dates: start: 20110706, end: 20130219
  6. E KEPPRA [Suspect]
     Indication: EPILEPSY
     Dosage: DAILY DOSE: 3000 MG
     Route: 048
     Dates: start: 20130220, end: 20130305
  7. E KEPPRA [Suspect]
     Indication: EPILEPSY
     Dosage: DAILY DOSE: 2500 MG
     Route: 048
     Dates: start: 20130306
  8. TEGRETOL [Suspect]
     Dosage: DAILY DOSE: 500 MG
     Route: 048
     Dates: start: 200309
  9. MYSTAN [Suspect]
     Dosage: DAILY DOSE: 22 MG
     Route: 048
     Dates: start: 200307
  10. PHENOBAL [Suspect]
     Dosage: DAILY DOSE: 100 MG
     Route: 048
     Dates: start: 200303
  11. PYRIDOSTIGMINE BROMIDE [Concomitant]
     Indication: MYASTHENIA GRAVIS
     Route: 048
     Dates: start: 20121010, end: 20121023
  12. PYRIDOSTIGMINE BROMIDE [Concomitant]
     Indication: MYASTHENIA GRAVIS
     Route: 048
     Dates: start: 20121024, end: 20121109
  13. PYRIDOSTIGMINE BROMIDE [Concomitant]
     Indication: MYASTHENIA GRAVIS
     Route: 048
     Dates: start: 20121110

REACTIONS (3)
  - Myasthenia gravis [Recovering/Resolving]
  - Complex partial seizures [Unknown]
  - Infection [Recovered/Resolved]
